FAERS Safety Report 6803961-6 (Version None)
Quarter: 2010Q2

REPORT INFORMATION
  Report Type: 
  Country: None (occurrence: None)
  Receive Date: 20100628
  Receipt Date: 20060410
  Transmission Date: 20101027
  Serious: No
  Sender: FDA-Public Use
  Company Number: US-PFIZER INC-2006052304

PATIENT
  Sex: Male
  Weight: 64.86 kg

DRUGS (5)
  1. SUTENT [Suspect]
     Indication: METASTASES TO LIVER
     Route: 048
     Dates: start: 20060301
  2. SANDOSTATIN LAR [Concomitant]
     Route: 030
  3. SULAR [Concomitant]
     Route: 065
  4. NORCO [Concomitant]
     Route: 065
  5. INTERFERON ALFA-2B [Concomitant]
     Route: 065
     Dates: end: 20060301

REACTIONS (4)
  - DRY SKIN [None]
  - JOINT STIFFNESS [None]
  - PALMAR-PLANTAR ERYTHRODYSAESTHESIA SYNDROME [None]
  - SKIN FISSURES [None]
